FAERS Safety Report 18833406 (Version 1)
Quarter: 2021Q1

REPORT INFORMATION
  Report Type: Other
  Country: GB (occurrence: GB)
  Receive Date: 20210203
  Receipt Date: 20210203
  Transmission Date: 20210419
  Serious: Yes (Hospitalization)
  Sender: FDA-Public Use
  Company Number: GB-MACLEODS PHARMACEUTICALS US LTD-MAC2021029952

PATIENT

DRUGS (7)
  1. RALTEGRAVIR. [Suspect]
     Active Substance: RALTEGRAVIR
     Indication: HIV TEST
     Dosage: 400 MILLIGRAM, BID
     Route: 048
  2. EFAVIRENZ. [Concomitant]
     Active Substance: EFAVIRENZ
     Indication: HIV TEST
     Dosage: 600 MILLIGRAM, QD
     Route: 048
  3. ESOMEPRAZOLE. [Concomitant]
     Active Substance: ESOMEPRAZOLE MAGNESIUM
     Indication: OESOPHAGEAL ULCER
     Dosage: 20 MILLIGRAM, BID
     Route: 065
  4. ESOMEPRAZOLE. [Concomitant]
     Active Substance: ESOMEPRAZOLE MAGNESIUM
     Dosage: 40 MILLIGRAM, BID
     Route: 048
  5. RALTEGRAVIR. [Suspect]
     Active Substance: RALTEGRAVIR
     Dosage: 600 MILLIGRAM, BID TABLET
     Route: 048
     Dates: start: 201810
  6. EMTRICITABINE/TENOFOVIR DISOPROXIL [Suspect]
     Active Substance: EMTRICITABINE\TENOFOVIR DISOPROXIL
     Indication: HIV TEST
     Dosage: 200/245MG, QD, TABLET
     Route: 048
  7. RALTEGRAVIR. [Suspect]
     Active Substance: RALTEGRAVIR
     Dosage: 400 MILLIGRAM
     Route: 065
     Dates: start: 201903

REACTIONS (1)
  - Oesophageal ulcer [Not Recovered/Not Resolved]
